FAERS Safety Report 21960713 (Version 5)
Quarter: 2024Q4

REPORT INFORMATION
  Report Type: Report from Study
  Country: CN (occurrence: CN)
  Receive Date: 20230207
  Receipt Date: 20241227
  Transmission Date: 20250115
  Serious: Yes (Other)
  Sender: ROCHE
  Company Number: CN-ROCHE-3277909

PATIENT
  Age: 66 Year
  Sex: Female
  Weight: 76.0 kg

DRUGS (27)
  1. ALECTINIB [Suspect]
     Active Substance: ALECTINIB
     Indication: Lung cancer metastatic
     Route: 048
     Dates: start: 20220412
  2. BEVACIZUMAB [Concomitant]
     Active Substance: BEVACIZUMAB
     Dates: start: 20230809, end: 20230809
  3. BEVACIZUMAB [Concomitant]
     Active Substance: BEVACIZUMAB
     Route: 065
     Dates: start: 20230710, end: 20230710
  4. HYDROCHLOROTHIAZIDE [Concomitant]
     Active Substance: HYDROCHLOROTHIAZIDE
     Dosage: SYMPTOMATIC TREATMENT OF HYPERTENSION
     Route: 048
     Dates: start: 20230110, end: 20230116
  5. SODIUM POTASSIUM MAGNESIUM CALCIUM AND GLUCOSE [Concomitant]
     Dosage: SYMPTOMATIC TREATMENT OF HYPOKALEMIA
     Route: 050
     Dates: start: 20230109, end: 20230116
  6. SODIUM POTASSIUM MAGNESIUM CALCIUM AND GLUCOSE [Concomitant]
     Dosage: SYMPTOMATIC TREATMENT OF HYPOKALEMIA
     Route: 050
     Dates: start: 20230614, end: 20230615
  7. SPIRONOLACTONE [Concomitant]
     Active Substance: SPIRONOLACTONE
     Dosage: SYMPTOMATIC TREATMENT OF HYPOKALEMIA
     Route: 048
     Dates: start: 20230104, end: 20230116
  8. AMBROXOL HYDROCHLORIDE [Concomitant]
     Active Substance: AMBROXOL HYDROCHLORIDE
     Dosage: SYMPTOMATIC TREATMENT OF UPPER RESPIRATORY TRACT INFECTION
     Route: 048
     Dates: start: 20230103, end: 20230117
  9. COMPOUND GLYCYRRHIZAE (UNK INGREDIENTS) [Concomitant]
     Dosage: SYMPTOMATIC TREATMENT OF THE NOVEL CORONAVIRUS
     Route: 048
     Dates: start: 20230105, end: 20230105
  10. CODEINE [Concomitant]
     Active Substance: CODEINE
     Dosage: SYMPTOMATIC TREATMENT OF THE NOVEL CORONAVIRUS
     Route: 048
     Dates: start: 20220107, end: 20230107
  11. DOXOFYLLINE [Concomitant]
     Active Substance: DOXOFYLLINE
     Indication: Asthma
     Route: 050
     Dates: start: 20230103, end: 20230116
  12. DOXOFYLLINE [Concomitant]
     Active Substance: DOXOFYLLINE
     Indication: Pneumonia viral
     Route: 050
     Dates: start: 20230223, end: 20230228
  13. INDAPAMIDE [Concomitant]
     Active Substance: INDAPAMIDE
     Indication: Hypertension
     Route: 048
     Dates: start: 202104, end: 202304
  14. VITAMIN C [Concomitant]
     Active Substance: ASCORBIC ACID
     Route: 042
     Dates: start: 20230103, end: 20230116
  15. ACETYLCYSTEINE [Concomitant]
     Active Substance: ACETYLCYSTEINE
     Route: 048
     Dates: start: 20230117, end: 202302
  16. ACETYLCYSTEINE [Concomitant]
     Active Substance: ACETYLCYSTEINE
     Route: 048
     Dates: start: 20230616
  17. SPLEEN POLYPEPTIDE [Concomitant]
     Route: 042
     Dates: start: 20230221, end: 20230221
  18. SPLEEN POLYPEPTIDE [Concomitant]
     Route: 042
     Dates: start: 20230222, end: 20230222
  19. BUDESONIDE [Concomitant]
     Active Substance: BUDESONIDE
     Indication: Pneumonia viral
     Dates: start: 20230223, end: 20230302
  20. MAGNESIUM SULFATE [Concomitant]
     Active Substance: MAGNESIUM SULFATE
     Route: 061
     Dates: start: 20230301, end: 20230302
  21. NIFEDIPINE [Concomitant]
     Active Substance: NIFEDIPINE
     Indication: Hypertension
     Route: 048
     Dates: start: 20230224
  22. NIFEDIPINE [Concomitant]
     Active Substance: NIFEDIPINE
     Route: 048
     Dates: start: 20230614, end: 20230614
  23. LEUCOGEN [Concomitant]
     Active Substance: LEUCOGEN
     Indication: Platelet count decreased
     Route: 048
     Dates: start: 20230520, end: 202309
  24. LEUCOGEN [Concomitant]
     Active Substance: LEUCOGEN
     Indication: Anaemia
  25. IRBESARTAN [Concomitant]
     Active Substance: IRBESARTAN
     Indication: Hypertension
     Route: 048
     Dates: start: 20230706
  26. DEXAMETHASONE SODIUM PHOSPHATE [Concomitant]
     Active Substance: DEXAMETHASONE SODIUM PHOSPHATE
     Route: 042
     Dates: start: 20240822, end: 20240822
  27. COMPOUND PLATYCODON [Concomitant]
     Indication: Cough
     Route: 048
     Dates: start: 20230614, end: 202306

REACTIONS (7)
  - Upper respiratory tract infection [Recovered/Resolved]
  - Hypokalaemia [Recovered/Resolved]
  - Anaemia [Recovering/Resolving]
  - COVID-19 [Not Recovered/Not Resolved]
  - Vasodilatation [Recovered/Resolved]
  - Hypertriglyceridaemia [Recovered/Resolved]
  - Platelet count decreased [Recovered/Resolved]

NARRATIVE: CASE EVENT DATE: 20220710
